FAERS Safety Report 23717825 (Version 2)
Quarter: 2024Q2

REPORT INFORMATION
  Report Type: Spontaneous
  Country: JP (occurrence: JP)
  Receive Date: 20240408
  Receipt Date: 20240422
  Transmission Date: 20240716
  Serious: Yes (Other)
  Sender: FDA-Public Use
  Company Number: JP-TEVA-VS-3179074

PATIENT
  Age: 3 Year
  Sex: Female

DRUGS (5)
  1. HYDROCORTISONE [Suspect]
     Active Substance: HYDROCORTISONE
     Indication: Acute lymphocytic leukaemia
     Dosage: 22-GAUGE QUINCKE SPINAL NEEDLE INTO THE L4-5 INTERSPACE
     Route: 037
  2. ASPARAGINASE [Suspect]
     Active Substance: ASPARAGINASE
     Indication: Acute lymphocytic leukaemia
     Route: 065
  3. VINCRISTINE [Suspect]
     Active Substance: VINCRISTINE
     Indication: Acute lymphocytic leukaemia
     Route: 065
  4. CYTARABINE [Suspect]
     Active Substance: CYTARABINE
     Indication: Acute lymphocytic leukaemia
     Dosage: 22-GAUGE QUINCKE SPINAL NEEDLE INTO THE L4-5 INTERSPACE
     Route: 037
  5. METHOTREXATE [Suspect]
     Active Substance: METHOTREXATE
     Indication: Acute lymphocytic leukaemia
     Dosage: 22-GAUGE QUINCKE SPINAL NEEDLE INTO THE L4-5 INTERSPACE
     Route: 037

REACTIONS (3)
  - Neutropenia [Unknown]
  - Neuropathy peripheral [Recovered/Resolved]
  - Thrombocytopenia [Unknown]
